FAERS Safety Report 7599938-6 (Version None)
Quarter: 2011Q3

REPORT INFORMATION
  Report Type: 
  Country: None (occurrence: None)
  Receive Date: 20110711
  Receipt Date: 20110629
  Transmission Date: 20111222
  Serious: Yes (Other)
  Sender: FDA-Public Use
  Company Number: IT-JNJFOC-20110611239

PATIENT
  Sex: Male
  Weight: 74 kg

DRUGS (4)
  1. ABIRATERONE ACETATE [Suspect]
     Indication: PROSTATE CANCER METASTATIC
     Route: 048
     Dates: start: 20110412, end: 20110623
  2. ABIRATERONE ACETATE [Suspect]
     Route: 048
  3. VASERETIC [Concomitant]
     Indication: HYPERTENSION
     Route: 048
  4. LERCANIDIPIN [Concomitant]
     Indication: HYPERTENSION
     Route: 048

REACTIONS (1)
  - PROSTATE CANCER [None]
